FAERS Safety Report 8243195-4 (Version None)
Quarter: 2012Q1

REPORT INFORMATION
  Report Type: 
  Country: None (occurrence: None)
  Receive Date: 20120329
  Receipt Date: 20120322
  Transmission Date: 20120608
  Serious: Yes (Death, Other)
  Sender: FDA-Public Use
  Company Number: DE-SANOFI-AVENTIS-2012SA019426

PATIENT
  Age: 74 Year
  Sex: Male
  Weight: 70 kg

DRUGS (4)
  1. JEVTANA KIT [Suspect]
     Route: 051
     Dates: start: 20120308, end: 20120308
  2. ELIGARD [Concomitant]
     Indication: PREMEDICATION
     Route: 065
     Dates: end: 20120101
  3. ONDANSETRON [Concomitant]
     Indication: PREMEDICATION
     Route: 065
     Dates: end: 20120301
  4. JEVTANA KIT [Suspect]
     Indication: PROSTATE CANCER METASTATIC
     Route: 051

REACTIONS (3)
  - RENAL FAILURE [None]
  - RESPIRATORY FAILURE [None]
  - FEBRILE NEUTROPENIA [None]
